FAERS Safety Report 13191191 (Version 3)
Quarter: 2017Q2

REPORT INFORMATION
  Report Type: Spontaneous
  Country: US (occurrence: US)
  Receive Date: 20170207
  Receipt Date: 20170404
  Transmission Date: 20170830
  Serious: No
  Sender: FDA-Public Use
  Company Number: US-ASTRAZENECA-2017SE11524

PATIENT
  Age: 2 Year
  Sex: Male
  Weight: 10.9 kg

DRUGS (5)
  1. ALBUTEROL. [Concomitant]
     Active Substance: ALBUTEROL
  2. SYNAGIS [Suspect]
     Active Substance: PALIVIZUMAB
     Indication: SKELETAL DYSPLASIA
     Dosage: MONTHLY
     Route: 030
     Dates: start: 20160202
  3. SYNAGIS [Suspect]
     Active Substance: PALIVIZUMAB
     Indication: TRACHEOSTOMY
     Dosage: MONTHLY
     Route: 030
     Dates: start: 20160202
  4. QVAR [Concomitant]
     Active Substance: BECLOMETHASONE DIPROPIONATE
  5. SYNAGIS [Suspect]
     Active Substance: PALIVIZUMAB
     Indication: TRACHEOMALACIA
     Dosage: MONTHLY
     Route: 030
     Dates: start: 20160202

REACTIONS (2)
  - Vomiting [Unknown]
  - Diarrhoea [Unknown]

NARRATIVE: CASE EVENT DATE: 2017
